FAERS Safety Report 4996559-6 (Version None)
Quarter: 2006Q2

REPORT INFORMATION
  Report Type: 
  Country: None (occurrence: None)
  Receive Date: 20060505
  Receipt Date: 20060426
  Transmission Date: 20061013
  Serious: Yes (Hospitalization)
  Sender: FDA-Public Use
  Company Number: CIP06000928

PATIENT
  Age: 76 Year
  Sex: Female

DRUGS (1)
  1. ACTONEL [Suspect]
     Indication: OSTEOPOROSIS
     Dosage: 35 MG ONCE WEEKLY, ORAL
     Route: 048
     Dates: start: 20050701, end: 20051001

REACTIONS (7)
  - ABASIA [None]
  - BLOOD CALCIUM DECREASED [None]
  - CONSTIPATION [None]
  - MUSCLE INJURY [None]
  - MUSCLE SPASMS [None]
  - POLYMYALGIA [None]
  - THERAPY NON-RESPONDER [None]
